FAERS Safety Report 17552565 (Version 1)
Quarter: 2020Q1

REPORT INFORMATION
  Report Type: Report from Study
  Country: US (occurrence: US)
  Receive Date: 20200317
  Receipt Date: 20200317
  Transmission Date: 20200409
  Serious: Yes (Hospitalization)
  Sender: FDA-Public Use
  Company Number: US-TEVA-2020-US-1204097

PATIENT
  Age: 4 Decade
  Sex: Male

DRUGS (6)
  1. METHOTREXATE. [Concomitant]
     Active Substance: METHOTREXATE
     Indication: PROPHYLAXIS
     Route: 065
     Dates: start: 20030123
  2. PREDNISONE. [Suspect]
     Active Substance: PREDNISONE
     Indication: NEUROCYSTICERCOSIS
     Dosage: 40 MILLIGRAM DAILY;
     Route: 065
     Dates: start: 200209
  3. ALBENDAZOLE. [Concomitant]
     Active Substance: ALBENDAZOLE
     Indication: NEUROCYSTICERCOSIS
     Dosage: WAS RESTARTED AND LATER DISCONTINUED
     Route: 065
     Dates: end: 200303
  4. PREDNISONE. [Suspect]
     Active Substance: PREDNISONE
     Indication: NEUROCYSTICERCOSIS
     Dosage: 60 MILLIGRAM DAILY;
     Route: 065
  5. DEXAMETHASONE. [Suspect]
     Active Substance: DEXAMETHASONE
     Indication: NEUROCYSTICERCOSIS
     Dosage: 12 MILLIGRAM DAILY;
     Route: 065
     Dates: end: 200307
  6. ALBENDAZOLE. [Concomitant]
     Active Substance: ALBENDAZOLE
     Indication: NEUROCYSTICERCOSIS
     Dosage: SCHEDULED TO RECEIVE 8-DAY COURSE; LATER DISCONTINUED
     Route: 065
     Dates: start: 200209

REACTIONS (1)
  - Arthropathy [Unknown]
